FAERS Safety Report 6736481-8 (Version None)
Quarter: 2010Q2

REPORT INFORMATION
  Report Type: 
  Country: None (occurrence: None)
  Receive Date: 20100521
  Receipt Date: 20100510
  Transmission Date: 20101027
  Serious: Yes (Other)
  Sender: FDA-Public Use
  Company Number: US-ELI_LILLY_AND_COMPANY-US201003003378

PATIENT
  Sex: Male

DRUGS (2)
  1. BYETTA [Suspect]
     Indication: TYPE 2 DIABETES MELLITUS
     Dosage: UNK, UNKNOWN
  2. METFORMIN HCL [Concomitant]

REACTIONS (5)
  - DECREASED APPETITE [None]
  - DIZZINESS [None]
  - EMERGENCY CARE [None]
  - HEART RATE INCREASED [None]
  - LOSS OF CONSCIOUSNESS [None]
